FAERS Safety Report 6933212-3 (Version None)
Quarter: 2010Q3

REPORT INFORMATION
  Report Type: 
  Country: None (occurrence: None)
  Receive Date: 20100820
  Receipt Date: 20100813
  Transmission Date: 20110219
  Serious: Yes (Other)
  Sender: FDA-Public Use
  Company Number: GB-TEVA-244854ISR

PATIENT
  Age: 17 Year
  Sex: Female
  Weight: 59 kg

DRUGS (4)
  1. CLOTRIMAZOLE [Suspect]
     Indication: CANDIDIASIS
     Dates: start: 20091215
  2. DIAZEPAM [Suspect]
     Indication: SEDATION
     Route: 048
     Dates: start: 20091013, end: 20091016
  3. AMOXICILLIN [Suspect]
     Indication: URINARY TRACT INFECTION
     Route: 048
     Dates: start: 20091222
  4. CERVARIX [Suspect]
     Indication: PROPHYLAXIS
     Route: 030
     Dates: start: 20091101, end: 20091101

REACTIONS (2)
  - ABORTION SPONTANEOUS [None]
  - DRUG EXPOSURE DURING PREGNANCY [None]
